FAERS Safety Report 4806726-X (Version None)
Quarter: 2005Q4

REPORT INFORMATION
  Report Type: 
  Country: None (occurrence: None)
  Receive Date: 20051019
  Receipt Date: 20051010
  Transmission Date: 20060501
  Serious: Yes (Hospitalization, Other)
  Sender: FDA-Public Use
  Company Number: NLWYE867429JUL05

PATIENT
  Age: 42 Year
  Sex: Female

DRUGS (2)
  1. EFFEXOR XR [Suspect]
     Dosage: 75 MG 3X PER 1 DAY ORAL
     Route: 048
     Dates: end: 20040101
  2. EFFEXOR XR [Suspect]
     Dosage: 75 MG 3X PER 1 DAY ORAL
     Route: 048
     Dates: end: 20040101

REACTIONS (3)
  - DIVERTICULUM [None]
  - SMALL INTESTINAL OBSTRUCTION [None]
  - STOOL ANALYSIS ABNORMAL [None]
